FAERS Safety Report 25939966 (Version 1)
Quarter: 2025Q4

REPORT INFORMATION
  Report Type: Spontaneous
  Country: US (occurrence: US)
  Receive Date: 20251020
  Receipt Date: 20251020
  Transmission Date: 20260117
  Serious: No
  Sender: Kenvue
  Company Number: US-KENVUE-20250915760

PATIENT
  Age: 73 Year
  Sex: Female
  Weight: 69.8 kg

DRUGS (14)
  1. TYLENOL [Suspect]
     Active Substance: ACETAMINOPHEN
     Indication: Back pain
     Dosage: UNK
     Route: 065
     Dates: start: 202509
  2. TREPROSTINIL SODIUM [Concomitant]
     Active Substance: TREPROSTINIL SODIUM
     Indication: Pulmonary hypertension
     Dosage: 72 MICROGRAM, FOUR TIME A DAY
     Dates: start: 2025
  3. TREPROSTINIL SODIUM [Concomitant]
     Active Substance: TREPROSTINIL SODIUM
     Dosage: UNK
     Dates: start: 20250121
  4. MINERALS\VITAMINS [Concomitant]
     Active Substance: MINERALS\VITAMINS
     Indication: Product used for unknown indication
     Route: 065
  5. TUMS [Concomitant]
     Active Substance: CALCIUM CARBONATE
     Indication: Product used for unknown indication
     Route: 065
  6. MIRALAX [Concomitant]
     Active Substance: POLYETHYLENE GLYCOL 3350
     Indication: Product used for unknown indication
     Route: 065
  7. RITUXAN [Concomitant]
     Active Substance: RITUXIMAB
     Indication: Product used for unknown indication
     Route: 065
  8. VITAMIN D3 [Concomitant]
     Active Substance: CHOLECALCIFEROL
     Indication: Product used for unknown indication
     Route: 065
  9. TEA LEAF [Concomitant]
     Active Substance: TEA LEAF
     Indication: Product used for unknown indication
     Route: 065
  10. OMEPRAZOLE [Concomitant]
     Active Substance: OMEPRAZOLE
     Indication: Product used for unknown indication
     Route: 065
  11. SPIRONOLACTONE [Concomitant]
     Active Substance: SPIRONOLACTONE
     Indication: Product used for unknown indication
     Route: 065
  12. OXYGEN [Concomitant]
     Active Substance: OXYGEN
     Indication: Product used for unknown indication
     Route: 065
  13. citracal-d3 [Concomitant]
     Indication: Product used for unknown indication
     Route: 065
  14. BENADRYL ALLERGY [Concomitant]
     Active Substance: DIPHENHYDRAMINE HYDROCHLORIDE
     Indication: Product used for unknown indication
     Route: 065

REACTIONS (1)
  - Product use in unapproved indication [Unknown]

NARRATIVE: CASE EVENT DATE: 20250901
